FAERS Safety Report 4362382-9 (Version None)
Quarter: 2004Q2

REPORT INFORMATION
  Report Type: 
  Country: None (occurrence: None)
  Receive Date: 20040521
  Receipt Date: 20020904
  Transmission Date: 20050107
  Serious: Yes (Hospitalization, Disabling, Other)
  Sender: FDA-Public Use
  Company Number: US-MERCK-0209USA00436

PATIENT
  Age: 74 Year
  Sex: Female
  Weight: 61 kg

DRUGS (12)
  1. [THERAPY UNSPECIFIED] [Concomitant]
     Indication: MIGRAINE
     Route: 065
  2. ALBUTEROL [Concomitant]
     Route: 065
  3. LANOXIN [Concomitant]
     Route: 065
  4. FLOVENT [Concomitant]
     Route: 065
  5. HYDROCHLOROTHIAZIDE AND TRIAMTERENE [Concomitant]
     Route: 048
  6. ATROVENT [Concomitant]
     Route: 065
  7. SINGULAIR [Concomitant]
     Route: 048
  8. DAYPRO [Concomitant]
     Route: 065
  9. VIOXX [Suspect]
     Indication: MIGRAINE
     Route: 048
     Dates: start: 20010101
  10. VIOXX [Suspect]
     Route: 048
  11. BEXTRA [Suspect]
     Route: 065
  12. EFFEXOR [Concomitant]
     Indication: DEPRESSION
     Route: 065
     Dates: start: 19940101

REACTIONS (43)
  - ACUTE PRERENAL FAILURE [None]
  - AFFECT LABILITY [None]
  - ANXIETY DISORDER [None]
  - AORTIC VALVE SCLEROSIS [None]
  - ARTHRALGIA [None]
  - ARTHROPATHY [None]
  - ASTHMA [None]
  - BACK PAIN [None]
  - BLOOD CHOLESTEROL INCREASED [None]
  - BLOOD TRIGLYCERIDES INCREASED [None]
  - BUNDLE BRANCH BLOCK RIGHT [None]
  - CHRONIC OBSTRUCTIVE AIRWAYS DISEASE [None]
  - CORONARY ARTERY DISEASE [None]
  - DIVERTICULUM [None]
  - DYSPEPSIA [None]
  - ENCEPHALITIS [None]
  - ENCEPHALOPATHY [None]
  - FALL [None]
  - FATIGUE [None]
  - GASTRIC DISORDER [None]
  - GASTROOESOPHAGEAL REFLUX DISEASE [None]
  - HIATUS HERNIA [None]
  - HYPERLIPIDAEMIA [None]
  - HYPERTENSIVE HEART DISEASE [None]
  - HYPERTROPHIC CARDIOMYOPATHY [None]
  - HYPOTENSION [None]
  - INJURY [None]
  - MEMORY IMPAIRMENT [None]
  - MENINGITIS [None]
  - MIGRAINE [None]
  - MYOCARDIAL INFARCTION [None]
  - NEURITIS [None]
  - NODAL ARRHYTHMIA [None]
  - NORMOCHROMIC NORMOCYTIC ANAEMIA [None]
  - OESOPHAGEAL SPASM [None]
  - PAIN IN EXTREMITY [None]
  - PANCREATITIS [None]
  - SKIN LACERATION [None]
  - SPINAL COLUMN STENOSIS [None]
  - STRESS SYMPTOMS [None]
  - TENSION [None]
  - THERAPEUTIC AGENT TOXICITY [None]
  - UROSEPSIS [None]
